FAERS Safety Report 12833530 (Version 1)
Quarter: 2016Q4

REPORT INFORMATION
  Report Type: Spontaneous
  Country: US (occurrence: US)
  Receive Date: 20161010
  Receipt Date: 20161010
  Transmission Date: 20170207
  Serious: No
  Sender: FDA-Public Use
  Company Number: US-DUSA PHARMACEUTICALS, INC.-1058157

PATIENT
  Age: 65 Year
  Sex: Female

DRUGS (1)
  1. LEVULAN KERASTICK [Suspect]
     Active Substance: AMINOLEVULINIC ACID HYDROCHLORIDE
     Route: 061
     Dates: start: 20160309, end: 20160309

REACTIONS (5)
  - Eye pain [Unknown]
  - Application site erythema [Unknown]
  - Vision blurred [Unknown]
  - Eye irritation [Unknown]
  - Photophobia [Unknown]
